FAERS Safety Report 8764046 (Version 2)
Quarter: 2012Q4

REPORT INFORMATION
  Report Type: 
  Country: CA (occurrence: CA)
  Receive Date: 20120831
  Receipt Date: 20120912
  Transmission Date: 20130627
  Serious: Yes (Death)
  Sender: FDA-Public Use
  Company Number: CA-JNJFOC-20120814068

PATIENT

DRUGS (102)
  1. DOXORUBICIN [Suspect]
     Indication: CHROMOSOME ANALYSIS ABNORMAL
     Dosage: on day 1 (intensification therapy for 30 weeks, 10 cycles - 21 days/cycle)
     Route: 042
  2. DOXORUBICIN [Suspect]
     Indication: CHROMOSOME ANALYSIS ABNORMAL
     Dosage: on day 1 (central nervous system therapy for 3 weeks)
     Route: 042
  3. DOXORUBICIN [Suspect]
     Indication: CHROMOSOME ANALYSIS ABNORMAL
     Dosage: on days 0 and 1 (induction therapy for 4 weeks)
     Route: 042
  4. DOXORUBICIN [Suspect]
     Indication: ACUTE LYMPHOCYTIC LEUKAEMIA
     Dosage: on day 1 (intensification therapy for 30 weeks, 10 cycles - 21 days/cycle)
     Route: 042
  5. DOXORUBICIN [Suspect]
     Indication: ACUTE LYMPHOCYTIC LEUKAEMIA
     Dosage: on day 1 (central nervous system therapy for 3 weeks)
     Route: 042
  6. DOXORUBICIN [Suspect]
     Indication: ACUTE LYMPHOCYTIC LEUKAEMIA
     Dosage: on days 0 and 1 (induction therapy for 4 weeks)
     Route: 042
  7. DOXORUBICIN [Suspect]
     Indication: CHROMOSOME ANALYSIS ABNORMAL
     Dosage: on day 1 (intensification therapy for 30 weeks, 10 cycles - 21 days/cycle)
     Route: 042
  8. DOXORUBICIN [Suspect]
     Indication: CHROMOSOME ANALYSIS ABNORMAL
     Dosage: on day 1 (central nervous system therapy for 3 weeks)
     Route: 042
  9. DOXORUBICIN [Suspect]
     Indication: CHROMOSOME ANALYSIS ABNORMAL
     Dosage: on days 0 and 1 (induction therapy for 4 weeks)
     Route: 042
  10. DOXORUBICIN [Suspect]
     Indication: ACUTE LYMPHOCYTIC LEUKAEMIA
     Dosage: on day 1 (intensification therapy for 30 weeks, 10 cycles - 21 days/cycle)
     Route: 042
  11. DOXORUBICIN [Suspect]
     Indication: ACUTE LYMPHOCYTIC LEUKAEMIA
     Dosage: on day 1 (central nervous system therapy for 3 weeks)
     Route: 042
  12. DOXORUBICIN [Suspect]
     Indication: ACUTE LYMPHOCYTIC LEUKAEMIA
     Dosage: on days 0 and 1 (induction therapy for 4 weeks)
     Route: 042
  13. IMATINIB [Suspect]
     Indication: CHROMOSOME ANALYSIS ABNORMAL
     Dosage: from day 1-14 (maintenance therapy for 72 weeks, 24 weeks - 21 days/cycle)
     Route: 048
  14. IMATINIB [Suspect]
     Indication: CHROMOSOME ANALYSIS ABNORMAL
     Dosage: on day 1 (intensification therapy for 30 weeks, 10 cycles - 21 days/cycle)
     Route: 048
  15. IMATINIB [Suspect]
     Indication: CHROMOSOME ANALYSIS ABNORMAL
     Dosage: on day 1 (central nervous system therapy for 3 weeks)
     Route: 048
  16. IMATINIB [Suspect]
     Indication: CHROMOSOME ANALYSIS ABNORMAL
     Dosage: on days 0 and 1 (induction therapy for 4 weeks)
     Route: 048
  17. IMATINIB [Suspect]
     Indication: ACUTE LYMPHOCYTIC LEUKAEMIA
     Dosage: from day 1-14 (maintenance therapy for 72 weeks, 24 weeks - 21 days/cycle)
     Route: 048
  18. IMATINIB [Suspect]
     Indication: ACUTE LYMPHOCYTIC LEUKAEMIA
     Dosage: on day 1 (intensification therapy for 30 weeks, 10 cycles - 21 days/cycle)
     Route: 048
  19. IMATINIB [Suspect]
     Indication: ACUTE LYMPHOCYTIC LEUKAEMIA
     Dosage: on day 1 (central nervous system therapy for 3 weeks)
     Route: 048
  20. IMATINIB [Suspect]
     Indication: ACUTE LYMPHOCYTIC LEUKAEMIA
     Dosage: on days 0 and 1 (induction therapy for 4 weeks)
     Route: 048
  21. PREDNISONE [Suspect]
     Indication: CHROMOSOME ANALYSIS ABNORMAL
     Dosage: on days 0-28 (induction therapy for 4 weeks)
     Route: 048
  22. PREDNISONE [Suspect]
     Indication: ACUTE LYMPHOCYTIC LEUKAEMIA
     Dosage: on days 0-28 (induction therapy for 4 weeks)
     Route: 048
  23. VINCRISTINE [Suspect]
     Indication: CHROMOSOME ANALYSIS ABNORMAL
     Dosage: from day 1 (maintenance therapy for 72 weeks, 24 weeks - 21 days/cycle)
     Route: 042
  24. VINCRISTINE [Suspect]
     Indication: CHROMOSOME ANALYSIS ABNORMAL
     Dosage: on day 1 (intensification therapy for 30 weeks, 10 cycles - 21 days/cycle)
     Route: 042
  25. VINCRISTINE [Suspect]
     Indication: CHROMOSOME ANALYSIS ABNORMAL
     Dosage: on day 1 (central nervous system therapy for 3 weeks)
     Route: 042
  26. VINCRISTINE [Suspect]
     Indication: CHROMOSOME ANALYSIS ABNORMAL
     Dosage: on days 0, 7, 14, 21 and 1 (induction therapy for 4 weeks)
     Route: 042
  27. VINCRISTINE [Suspect]
     Indication: ACUTE LYMPHOCYTIC LEUKAEMIA
     Dosage: from day 1 (maintenance therapy for 72 weeks, 24 weeks - 21 days/cycle)
     Route: 042
  28. VINCRISTINE [Suspect]
     Indication: ACUTE LYMPHOCYTIC LEUKAEMIA
     Dosage: on day 1 (intensification therapy for 30 weeks, 10 cycles - 21 days/cycle)
     Route: 042
  29. VINCRISTINE [Suspect]
     Indication: ACUTE LYMPHOCYTIC LEUKAEMIA
     Dosage: on day 1 (central nervous system therapy for 3 weeks)
     Route: 042
  30. VINCRISTINE [Suspect]
     Indication: ACUTE LYMPHOCYTIC LEUKAEMIA
     Dosage: on days 0, 7, 14, 21 and 1 (induction therapy for 4 weeks)
     Route: 042
  31. METHOTREXATE [Suspect]
     Indication: CHROMOSOME ANALYSIS ABNORMAL
     Dosage: on days 1, 8 and 15 (maintenance therapy for 72 weeks, 24 cycles - 21 days/cycle)
     Route: 042
  32. METHOTREXATE [Suspect]
     Indication: CHROMOSOME ANALYSIS ABNORMAL
     Dosage: days 2,9,16 (cycles 8-10 only) (Intensification therapy 30 weeks (10 cycles- 21 days?cycle)
     Route: 042
  33. METHOTREXATE [Suspect]
     Indication: CHROMOSOME ANALYSIS ABNORMAL
     Dosage: over 1 hour on day 2 (induction therapy for 4 weeks)
     Route: 042
  34. METHOTREXATE [Suspect]
     Indication: ACUTE LYMPHOCYTIC LEUKAEMIA
     Dosage: on days 1, 8 and 15 (maintenance therapy for 72 weeks, 24 cycles - 21 days/cycle)
     Route: 042
  35. METHOTREXATE [Suspect]
     Indication: ACUTE LYMPHOCYTIC LEUKAEMIA
     Dosage: days 2,9,16 (cycles 8-10 only) (Intensification therapy 30 weeks (10 cycles- 21 days?cycle)
     Route: 042
  36. METHOTREXATE [Suspect]
     Indication: ACUTE LYMPHOCYTIC LEUKAEMIA
     Dosage: over 1 hour on day 2 (induction therapy for 4 weeks)
     Route: 042
  37. ASPARAGINASE [Suspect]
     Indication: CHROMOSOME ANALYSIS ABNORMAL
     Dosage: 12500 IU/m2 on days 1, 8 and 15 (intensification theray for 30 weeks, 10 cycles - 21 days/cycle)
     Route: 030
  38. ASPARAGINASE [Suspect]
     Indication: CHROMOSOME ANALYSIS ABNORMAL
     Dosage: 25000 IU/m2 on day 4 (induction therapy for 4 weeks)
     Route: 030
  39. ASPARAGINASE [Suspect]
     Indication: ACUTE LYMPHOCYTIC LEUKAEMIA
     Dosage: 12500 IU/m2 on days 1, 8 and 15 (intensification theray for 30 weeks, 10 cycles - 21 days/cycle)
     Route: 030
  40. ASPARAGINASE [Suspect]
     Indication: ACUTE LYMPHOCYTIC LEUKAEMIA
     Dosage: 25000 IU/m2 on day 4 (induction therapy for 4 weeks)
     Route: 030
  41. CYTARABINE [Suspect]
     Indication: CHROMOSOME ANALYSIS ABNORMAL
     Dosage: every 18 weeks (maintenance therapy for 72 weeks, 24 cycles - 21 days/cycle)
     Route: 037
  42. CYTARABINE [Suspect]
     Indication: CHROMOSOME ANALYSIS ABNORMAL
     Dosage: every 18 weeks (intensification therapy for 30 weeks, 10 cycles - 21days/cycle)
     Route: 037
  43. CYTARABINE [Suspect]
     Indication: CHROMOSOME ANALYSIS ABNORMAL
     Dosage: on days 1, 4, 8 and 11 (central nervous system therapy for 3 weeks)
     Route: 037
  44. CYTARABINE [Suspect]
     Indication: CHROMOSOME ANALYSIS ABNORMAL
     Dosage: on days 0 and 14 (inducation therapy for 4 weeks)
     Route: 037
  45. CYTARABINE [Suspect]
     Indication: ACUTE LYMPHOCYTIC LEUKAEMIA
     Dosage: every 18 weeks (maintenance therapy for 72 weeks, 24 cycles - 21 days/cycle)
     Route: 037
  46. CYTARABINE [Suspect]
     Indication: ACUTE LYMPHOCYTIC LEUKAEMIA
     Dosage: every 18 weeks (intensification therapy for 30 weeks, 10 cycles - 21days/cycle)
     Route: 037
  47. CYTARABINE [Suspect]
     Indication: ACUTE LYMPHOCYTIC LEUKAEMIA
     Dosage: on days 1, 4, 8 and 11 (central nervous system therapy for 3 weeks)
     Route: 037
  48. CYTARABINE [Suspect]
     Indication: ACUTE LYMPHOCYTIC LEUKAEMIA
     Dosage: on days 0 and 14 (inducation therapy for 4 weeks)
     Route: 037
  49. METHOTREXATE [Suspect]
     Indication: CHROMOSOME ANALYSIS ABNORMAL
     Dosage: every 18 weeks (maintenance therapy for 72 weeks, 24 cycles - 21 days/cycle)
     Route: 037
  50. METHOTREXATE [Suspect]
     Indication: CHROMOSOME ANALYSIS ABNORMAL
     Dosage: every 18 weeks (intensification therapy for 30 weeks, 10 cycles - 21days/cycle)
     Route: 037
  51. METHOTREXATE [Suspect]
     Indication: CHROMOSOME ANALYSIS ABNORMAL
     Dosage: on days 1, 4, 8 and 11 (central nervous system therapy for 3 weeks)
     Route: 037
  52. METHOTREXATE [Suspect]
     Indication: CHROMOSOME ANALYSIS ABNORMAL
     Dosage: on days 0 and 14 (inducation therapy for 4 weeks)
     Route: 037
  53. METHOTREXATE [Suspect]
     Indication: ACUTE LYMPHOCYTIC LEUKAEMIA
     Dosage: every 18 weeks (maintenance therapy for 72 weeks, 24 cycles - 21 days/cycle)
     Route: 037
  54. METHOTREXATE [Suspect]
     Indication: ACUTE LYMPHOCYTIC LEUKAEMIA
     Dosage: every 18 weeks (intensification therapy for 30 weeks, 10 cycles - 21days/cycle)
     Route: 037
  55. METHOTREXATE [Suspect]
     Indication: ACUTE LYMPHOCYTIC LEUKAEMIA
     Dosage: on days 1, 4, 8 and 11 (central nervous system therapy for 3 weeks)
     Route: 037
  56. METHOTREXATE [Suspect]
     Indication: ACUTE LYMPHOCYTIC LEUKAEMIA
     Dosage: on days 0 and 14 (inducation therapy for 4 weeks)
     Route: 037
  57. HYDROCORTISONE [Suspect]
     Indication: CHROMOSOME ANALYSIS ABNORMAL
     Dosage: every 18 weeks (maintenance therapy for 72 weeks, 24 cycles - 21 days/cycle)
     Route: 037
  58. HYDROCORTISONE [Suspect]
     Indication: CHROMOSOME ANALYSIS ABNORMAL
     Dosage: every 18 weeks (intensification therapy for 30 weeks, 10 cycles - 21days/cycle)
     Route: 037
  59. HYDROCORTISONE [Suspect]
     Indication: CHROMOSOME ANALYSIS ABNORMAL
     Dosage: on days 1, 4, 8 and 11 (central nervous system therapy for 3 weeks)
     Route: 037
  60. HYDROCORTISONE [Suspect]
     Indication: CHROMOSOME ANALYSIS ABNORMAL
     Dosage: on days 0 and 14 (inducation therapy for 4 weeks)
     Route: 037
  61. HYDROCORTISONE [Suspect]
     Indication: ACUTE LYMPHOCYTIC LEUKAEMIA
     Dosage: every 18 weeks (maintenance therapy for 72 weeks, 24 cycles - 21 days/cycle)
     Route: 037
  62. HYDROCORTISONE [Suspect]
     Indication: ACUTE LYMPHOCYTIC LEUKAEMIA
     Dosage: every 18 weeks (intensification therapy for 30 weeks, 10 cycles - 21days/cycle)
     Route: 037
  63. HYDROCORTISONE [Suspect]
     Indication: ACUTE LYMPHOCYTIC LEUKAEMIA
     Dosage: on days 1, 4, 8 and 11 (central nervous system therapy for 3 weeks)
     Route: 037
  64. HYDROCORTISONE [Suspect]
     Indication: ACUTE LYMPHOCYTIC LEUKAEMIA
     Dosage: on days 0 and 14 (inducation therapy for 4 weeks)
     Route: 037
  65. 6-MERCAPTOPURINE [Suspect]
     Indication: CHROMOSOME ANALYSIS ABNORMAL
     Dosage: from day 1-14 (maintenance therapy for 72 weeks, 24 cycles - 21 days/cycle)
     Route: 048
  66. 6-MERCAPTOPURINE [Suspect]
     Indication: CHROMOSOME ANALYSIS ABNORMAL
     Dosage: from day 1-14 (intensification therapy for 30 weeks, 10 cycles - 21 days/cycle)
     Route: 048
  67. 6-MERCAPTOPURINE [Suspect]
     Indication: CHROMOSOME ANALYSIS ABNORMAL
     Dosage: from day 1-14 (central nervous system therapy for 3 weeks)
     Route: 048
  68. 6-MERCAPTOPURINE [Suspect]
     Indication: ACUTE LYMPHOCYTIC LEUKAEMIA
     Dosage: from day 1-14 (maintenance therapy for 72 weeks, 24 cycles - 21 days/cycle)
     Route: 048
  69. 6-MERCAPTOPURINE [Suspect]
     Indication: ACUTE LYMPHOCYTIC LEUKAEMIA
     Dosage: from day 1-14 (intensification therapy for 30 weeks, 10 cycles - 21 days/cycle)
     Route: 048
  70. 6-MERCAPTOPURINE [Suspect]
     Indication: ACUTE LYMPHOCYTIC LEUKAEMIA
     Dosage: from day 1-14 (central nervous system therapy for 3 weeks)
     Route: 048
  71. RADIATION THERAPY [Suspect]
     Indication: CHROMOSOME ANALYSIS ABNORMAL
     Dosage: 1200 cGy over 8 days (central nervous system therapy for 3 weeks)
     Route: 065
  72. RADIATION THERAPY [Suspect]
     Indication: ACUTE LYMPHOCYTIC LEUKAEMIA
     Dosage: 1200 cGy over 8 days (central nervous system therapy for 3 weeks)
     Route: 065
  73. DEXAMETHASONE [Suspect]
     Indication: CHROMOSOME ANALYSIS ABNORMAL
     Dosage: from day 1-5 (maintenance therapy for 72 weeks, 24 cycles - 21 days/cycle)
     Route: 048
  74. DEXAMETHASONE [Suspect]
     Indication: CHROMOSOME ANALYSIS ABNORMAL
     Dosage: from day 1-5 (intensification therapy for 30 weeks, 10 cycles - 21 days/cycle)
     Route: 048
  75. DEXAMETHASONE [Suspect]
     Indication: ACUTE LYMPHOCYTIC LEUKAEMIA
     Dosage: from day 1-5 (maintenance therapy for 72 weeks, 24 cycles - 21 days/cycle)
     Route: 048
  76. DEXAMETHASONE [Suspect]
     Indication: ACUTE LYMPHOCYTIC LEUKAEMIA
     Dosage: from day 1-5 (intensification therapy for 30 weeks, 10 cycles - 21 days/cycle)
     Route: 048
  77. METHOTREXATE [Suspect]
     Indication: CHROMOSOME ANALYSIS ABNORMAL
     Dosage: on days 1, 8 and 15 (maintenance therapy for 72 weeks, 24 cycles - 21 days/cycle)
     Route: 030
  78. METHOTREXATE [Suspect]
     Indication: ACUTE LYMPHOCYTIC LEUKAEMIA
     Dosage: on days 1, 8 and 15 (maintenance therapy for 72 weeks, 24 cycles - 21 days/cycle)
     Route: 030
  79. CYCLOPHOSPHAMIDE [Suspect]
     Indication: CHROMOSOME ANALYSIS ABNORMAL
     Dosage: twice (Myeloablative HSCT preparative regimen)
     Route: 065
  80. CYCLOPHOSPHAMIDE [Suspect]
     Indication: ACUTE LYMPHOCYTIC LEUKAEMIA
     Dosage: twice (Myeloablative HSCT preparative regimen)
     Route: 065
  81. RADIATION THERAPY [Suspect]
     Indication: CHROMOSOME ANALYSIS ABNORMAL
     Dosage: 2 Gy in 1 fractions (reduced intensity conditioning regimen)
     Route: 065
  82. RADIATION THERAPY [Suspect]
     Indication: CHROMOSOME ANALYSIS ABNORMAL
     Dosage: 12 Gy in 6 fractions or 4 Gy in 2 fractions (Myeloablative HSCT preparative regimen)
     Route: 065
  83. RADIATION THERAPY [Suspect]
     Indication: ACUTE LYMPHOCYTIC LEUKAEMIA
     Dosage: 2 Gy in 1 fractions (reduced intensity conditioning regimen)
     Route: 065
  84. RADIATION THERAPY [Suspect]
     Indication: ACUTE LYMPHOCYTIC LEUKAEMIA
     Dosage: 12 Gy in 6 fractions or 4 Gy in 2 fractions (Myeloablative HSCT preparative regimen)
     Route: 065
  85. FLUDARABINE [Suspect]
     Indication: CHROMOSOME ANALYSIS ABNORMAL
     Dosage: four times (reduced intensity conditioning regimen)
     Route: 065
  86. FLUDARABINE [Suspect]
     Indication: CHROMOSOME ANALYSIS ABNORMAL
     Dosage: four times (Myeloablative HSCT preparative regimen)
     Route: 065
  87. FLUDARABINE [Suspect]
     Indication: ACUTE LYMPHOCYTIC LEUKAEMIA
     Dosage: four times (reduced intensity conditioning regimen)
     Route: 065
  88. FLUDARABINE [Suspect]
     Indication: ACUTE LYMPHOCYTIC LEUKAEMIA
     Dosage: four times (Myeloablative HSCT preparative regimen)
     Route: 065
  89. BUSULFAN [Suspect]
     Indication: CHROMOSOME ANALYSIS ABNORMAL
     Dosage: twice (reduced intensity conditioning regimen)
     Route: 065
  90. BUSULFAN [Suspect]
     Indication: CHROMOSOME ANALYSIS ABNORMAL
     Dosage: four times (Myeloablative HSCT preparative regimen)
     Route: 065
  91. BUSULFAN [Suspect]
     Indication: ACUTE LYMPHOCYTIC LEUKAEMIA
     Dosage: twice (reduced intensity conditioning regimen)
     Route: 065
  92. BUSULFAN [Suspect]
     Indication: ACUTE LYMPHOCYTIC LEUKAEMIA
     Dosage: four times (Myeloablative HSCT preparative regimen)
     Route: 065
  93. LEUCOVORIN [Suspect]
     Indication: PROPHYLAXIS
     Dosage: over 1 hour on day 2
     Route: 065
  94. TRIMETHOPRIM AND SULFAMETHOXAZOLE [Concomitant]
     Indication: ANTIFUNGAL PROPHYLAXIS
     Route: 065
  95. PENTAMIDINE [Concomitant]
     Indication: ANTIFUNGAL PROPHYLAXIS
     Route: 055
  96. CALCIUM AND VITAMIN D [Concomitant]
     Indication: PROPHYLAXIS
     Route: 065
  97. ALENDRONATE [Concomitant]
     Indication: PROPHYLAXIS
     Route: 065
  98. RISEDRONATE [Concomitant]
     Indication: PROPHYLAXIS
     Route: 065
  99. CICLOSPORIN [Concomitant]
     Indication: PROPHYLAXIS AGAINST GRAFT VERSUS HOST DISEASE
     Route: 065
  100. METHOTREXATE [Concomitant]
     Indication: PROPHYLAXIS AGAINST GRAFT VERSUS HOST DISEASE
     Route: 065
  101. ALEMTUZUMAB [Concomitant]
     Indication: PROPHYLAXIS AGAINST GRAFT VERSUS HOST DISEASE
     Route: 065
  102. FLUCONAZOLE [Concomitant]
     Indication: ANTIFUNGAL PROPHYLAXIS
     Route: 065

REACTIONS (2)
  - Influenza [Fatal]
  - Off label use [Unknown]
